FAERS Safety Report 24728144 (Version 1)
Quarter: 2024Q4

REPORT INFORMATION
  Report Type: Spontaneous
  Country: US (occurrence: None)
  Receive Date: 20241212
  Receipt Date: 20241212
  Transmission Date: 20250114
  Serious: Yes (Hospitalization)
  Sender: Public
  Company Number: None

PATIENT
  Age: 55 Year
  Sex: Male
  Weight: 97 kg

DRUGS (3)
  1. IBUPROFEN [Suspect]
     Active Substance: IBUPROFEN
     Indication: Pyrexia
     Dosage: OTHER FREQUENCY : OTHER;?
     Route: 048
     Dates: end: 20230831
  2. TYLENOL [Suspect]
     Active Substance: ACETAMINOPHEN
  3. NAPROXEN [Suspect]
     Active Substance: NAPROXEN

REACTIONS (7)
  - Erythema multiforme [None]
  - Pyrexia [None]
  - Leukopenia [None]
  - Liver function test increased [None]
  - Rash [None]
  - Peripheral swelling [None]
  - Synovitis [None]

NARRATIVE: CASE EVENT DATE: 20231228
